FAERS Safety Report 9755841 (Version 2)
Quarter: 2013Q4

REPORT INFORMATION
  Report Type: Spontaneous
  Country: US (occurrence: US)
  Receive Date: 20131213
  Receipt Date: 20131213
  Transmission Date: 20140711
  Serious: Yes (Hospitalization)
  Sender: FDA-Public Use
  Company Number: US-GLAXOSMITHKLINE-A0903056A

PATIENT
  Age: 67 Year
  Sex: Female
  Weight: 98.2 kg

DRUGS (4)
  1. AVANDIA [Suspect]
     Indication: DIABETES MELLITUS
     Dosage: 8MG PER DAY
     Route: 048
     Dates: start: 20021028, end: 20090418
  2. PROVENTIL [Concomitant]
  3. ADVAIR [Concomitant]
  4. BENICAR [Concomitant]

REACTIONS (3)
  - Acute myocardial infarction [Unknown]
  - Coronary artery disease [Unknown]
  - Left ventricular dysfunction [Unknown]
